FAERS Safety Report 6151997-3 (Version None)
Quarter: 2009Q2

REPORT INFORMATION
  Report Type: 
  Country: None (occurrence: None)
  Receive Date: 20090409
  Receipt Date: 20090409
  Transmission Date: 20091009
  Serious: No
  Sender: FDA-Public Use
  Company Number: None

PATIENT
  Age: 45 Year
  Sex: Female
  Weight: 61.2356 kg

DRUGS (2)
  1. SEROQUEL [Suspect]
     Indication: BIPOLAR II DISORDER
  2. SEROQUEL [Suspect]
     Indication: DEPRESSION

REACTIONS (1)
  - CATARACT [None]
